FAERS Safety Report 15330413 (Version 2)
Quarter: 2018Q3

REPORT INFORMATION
  Report Type: Report from Study
  Country: CA (occurrence: CA)
  Receive Date: 20180829
  Receipt Date: 20180905
  Transmission Date: 20181010
  Serious: Yes (Hospitalization, Other)
  Sender: FDA-Public Use
  Company Number: CA-GLAXOSMITHKLINE-CA2018GSK154323

PATIENT
  Sex: Female

DRUGS (10)
  1. BECONASE AQ [Suspect]
     Active Substance: BECLOMETHASONE DIPROPIONATE MONOHYDRATE
     Indication: PRODUCT USED FOR UNKNOWN INDICATION
     Dosage: 4 DF, BID
  2. SALBUTAMOL SULPHATE [Suspect]
     Active Substance: ALBUTEROL SULFATE
     Indication: PRODUCT USED FOR UNKNOWN INDICATION
     Dosage: UNK UNK, PRN
  3. SINGULAIR [Suspect]
     Active Substance: MONTELUKAST SODIUM
     Indication: PRODUCT USED FOR UNKNOWN INDICATION
     Dosage: 10 MG, QD
  4. BECLOVENT [Suspect]
     Active Substance: BECLOMETHASONE DIPROPIONATE
     Indication: PROPHYLAXIS
     Dosage: 2 PUFF(S), BID
  5. SEREVENT DISKUS [Suspect]
     Active Substance: SALMETEROL XINAFOATE
     Indication: PRODUCT USED FOR UNKNOWN INDICATION
     Dosage: UNK UNK, BID
  6. DUKORAL [Concomitant]
     Active Substance: CHOLERA VACCINE
     Indication: PRODUCT USED FOR UNKNOWN INDICATION
     Dosage: UNK
  7. NORVASC [Concomitant]
     Active Substance: AMLODIPINE BESYLATE
     Indication: PRODUCT USED FOR UNKNOWN INDICATION
     Dosage: 5 MG, Z
  8. CELEXA [Concomitant]
     Active Substance: CITALOPRAM HYDROBROMIDE
     Indication: PRODUCT USED FOR UNKNOWN INDICATION
     Dosage: 40 MG, QD
  9. FLOVENT DISKUS [Suspect]
     Active Substance: FLUTICASONE PROPIONATE
     Indication: PRODUCT USED FOR UNKNOWN INDICATION
     Dosage: 2 PUFF(S), BID
  10. SYMBICORT [Suspect]
     Active Substance: BUDESONIDE\FORMOTEROL FUMARATE DIHYDRATE
     Indication: PRODUCT USED FOR UNKNOWN INDICATION
     Dosage: 2 PUFF(S), BID

REACTIONS (33)
  - Pyrexia [Unknown]
  - Bronchial hyperreactivity [Unknown]
  - Anxiety [Unknown]
  - Bronchitis [Unknown]
  - Lymphadenopathy [Unknown]
  - Wheezing [Recovered/Resolved]
  - Appendicitis [Unknown]
  - Upper respiratory tract infection [Unknown]
  - Urinary tract infection [Unknown]
  - Lung consolidation [Unknown]
  - Asthma [Unknown]
  - Chest discomfort [Recovered/Resolved]
  - Ill-defined disorder [Unknown]
  - Transaminases increased [Unknown]
  - Blood bilirubin increased [Unknown]
  - Fatigue [Not Recovered/Not Resolved]
  - Tuberculosis [Unknown]
  - Dyspnoea [Unknown]
  - Poor quality sleep [Unknown]
  - White blood cell count increased [Unknown]
  - Stress [Not Recovered/Not Resolved]
  - Middle insomnia [Unknown]
  - Sepsis [Unknown]
  - Cough [Recovered/Resolved]
  - Drug effect incomplete [Unknown]
  - Insomnia [Unknown]
  - Viral test positive [Unknown]
  - Pneumonia [Unknown]
  - Nausea [Unknown]
  - Depression [Unknown]
  - Cardiovascular deconditioning [Unknown]
  - Dyspnoea exertional [Not Recovered/Not Resolved]
  - Diarrhoea infectious [Unknown]
